FAERS Safety Report 25214696 (Version 1)
Quarter: 2025Q2

REPORT INFORMATION
  Report Type: Spontaneous
  Country: CN (occurrence: CN)
  Receive Date: 20250418
  Receipt Date: 20250418
  Transmission Date: 20250716
  Serious: Yes (Life-Threatening, Other)
  Sender: PFIZER
  Company Number: CN-PFIZER INC-PV202500044448

PATIENT
  Age: 14 Year
  Sex: Male
  Weight: 45.9 kg

DRUGS (6)
  1. EPIRUBICIN [Suspect]
     Active Substance: EPIRUBICIN
     Indication: Brain neoplasm malignant
     Dosage: 22 MG, 2X/DAY
     Route: 041
     Dates: start: 20250208, end: 20250209
  2. IFOSFAMIDE [Suspect]
     Active Substance: IFOSFAMIDE
     Indication: Brain neoplasm malignant
     Dosage: 3.2 G, 1X/DAY
     Route: 041
     Dates: start: 20250208, end: 20250209
  3. VINCRISTINE SULFATE [Suspect]
     Active Substance: VINCRISTINE SULFATE
     Indication: Brain neoplasm malignant
     Dosage: 1.6 MG, 1X/DAY
     Route: 041
     Dates: start: 20250208, end: 20250208
  4. DEXTROSE\SODIUM CHLORIDE [Concomitant]
     Active Substance: DEXTROSE\SODIUM CHLORIDE
     Dates: start: 20250208, end: 20250209
  5. SODIUM CHLORIDE [Concomitant]
     Active Substance: SODIUM CHLORIDE
     Dates: start: 20250208, end: 20250209
  6. SODIUM CHLORIDE [Concomitant]
     Active Substance: SODIUM CHLORIDE
     Dates: start: 20250208, end: 20250208

REACTIONS (2)
  - Myelosuppression [Recovering/Resolving]
  - Off label use [Unknown]

NARRATIVE: CASE EVENT DATE: 20250217
